FAERS Safety Report 5878321-5 (Version None)
Quarter: 2008Q3

REPORT INFORMATION
  Report Type: 
  Country: None (occurrence: None)
  Receive Date: 20080911
  Receipt Date: 20080906
  Transmission Date: 20090109
  Serious: Yes (Hospitalization)
  Sender: FDA-Public Use
  Company Number: US-PFIZER INC-2008074704

PATIENT
  Sex: Male
  Weight: 100.2 kg

DRUGS (10)
  1. GLIPIZIDE [Suspect]
     Indication: DIABETES MELLITUS MANAGEMENT
     Route: 048
  2. METFORMIN HCL [Concomitant]
  3. FOLIC ACID [Concomitant]
  4. PREVACID [Concomitant]
  5. PRAVACHOL [Concomitant]
  6. ALLOPURINOL [Concomitant]
  7. ATENOLOL [Concomitant]
  8. TRICOR [Concomitant]
  9. VITAMIN TAB [Concomitant]
  10. HERBAL NOS/MINERALS NOS [Concomitant]

REACTIONS (3)
  - BLOOD GLUCOSE INCREASED [None]
  - GASTROENTERITIS SALMONELLA [None]
  - NERVOUS SYSTEM DISORDER [None]
